FAERS Safety Report 5710515-1 (Version None)
Quarter: 2008Q2

REPORT INFORMATION
  Report Type: 
  Country: None (occurrence: None)
  Receive Date: 20080415
  Receipt Date: 20080331
  Transmission Date: 20081010
  Serious: Yes (Hospitalization, Other)
  Sender: FDA-Public Use
  Company Number: 2008BM000067

PATIENT
  Age: 15 Year
  Sex: Male
  Weight: 22 kg

DRUGS (4)
  1. NAGLAZYME (GALSUFASE) SOLUTION (EXCEPT SYRUP), 1.0MG/ML [Suspect]
     Indication: MUCOPOLYSACCHARIDOSIS VI
     Dosage: 1 MG/KG; QW; IV
     Route: 042
     Dates: start: 20061101
  2. DIAMOX SRC [Concomitant]
  3. ZANTAC [Concomitant]
  4. LORATADINE [Concomitant]

REACTIONS (4)
  - BLOOD CULTURE POSITIVE [None]
  - HAEMATURIA [None]
  - INFECTION [None]
  - SEPSIS [None]
